FAERS Safety Report 7310854-7 (Version None)
Quarter: 2011Q1

REPORT INFORMATION
  Report Type: 
  Country: None (occurrence: None)
  Receive Date: 20110224
  Receipt Date: 20110209
  Transmission Date: 20110831
  Serious: Yes (Life-Threatening)
  Sender: FDA-Public Use
  Company Number: PT-BAUSCH-2011BL000877

PATIENT
  Age: 9 Year
  Sex: Male

DRUGS (1)
  1. PREDNISOLONE [Suspect]
     Indication: ALLERGY TO ARTHROPOD BITE
     Route: 042
     Dates: start: 20090128, end: 20090128

REACTIONS (4)
  - DYSPNOEA [None]
  - HYPOTENSION [None]
  - URTICARIA [None]
  - CONJUNCTIVITIS [None]
